FAERS Safety Report 26056409 (Version 1)
Quarter: 2025Q4

REPORT INFORMATION
  Report Type: Spontaneous
  Country: US (occurrence: US)
  Receive Date: 20251118
  Receipt Date: 20251118
  Transmission Date: 20260118
  Serious: Yes (Hospitalization)
  Sender: AMNEAL
  Company Number: US-AMNEAL PHARMACEUTICALS-2024-AMRX-03634

PATIENT
  Age: 16 Year
  Sex: Male
  Weight: 68.027 kg

DRUGS (1)
  1. ISOTRETINOIN [Suspect]
     Active Substance: ISOTRETINOIN
     Indication: Acne
     Dosage: 60 MILLIGRAM, DAILY
     Route: 048

REACTIONS (1)
  - Depression [Unknown]

NARRATIVE: CASE EVENT DATE: 20241001
